FAERS Safety Report 4438477-8 (Version None)
Quarter: 2004Q3

REPORT INFORMATION
  Report Type: 
  Country: None (occurrence: None)
  Receive Date: 20040728
  Receipt Date: 20040323
  Transmission Date: 20050211
  Serious: No
  Sender: FDA-Public Use
  Company Number: USA040362927

PATIENT
  Age: 53 Year
  Sex: Female
  Weight: 83 kg

DRUGS (4)
  1. STRATTERA [Suspect]
     Indication: ATTENTION DEFICIT/HYPERACTIVITY DISORDER
     Dosage: 100 MG DAY
     Dates: start: 20030106
  2. FLOVENT [Concomitant]
  3. PRILOSEC [Concomitant]
  4. ALLEGRA [Concomitant]

REACTIONS (4)
  - FEELING HOT [None]
  - HOT FLUSH [None]
  - INSOMNIA [None]
  - SOMNOLENCE [None]
